FAERS Safety Report 11900426 (Version 1)
Quarter: 2016Q1

REPORT INFORMATION
  Report Type: Report from Study
  Country: US (occurrence: US)
  Receive Date: 20160108
  Receipt Date: 20160108
  Transmission Date: 20160526
  Serious: No
  Sender: FDA-Public Use
  Company Number: US-ABBVIE-15P-163-1466278-00

PATIENT
  Sex: Male

DRUGS (2)
  1. VIEKIRA PAK [Suspect]
     Active Substance: DASABUVIR\OMBITASVIR\PARITAPREVIR\RITONAVIR
     Indication: HEPATITIS C
     Dosage: WEEKLY PACK 28^S, IN THE MORNING AND IN THE EVENING
     Route: 048
     Dates: start: 20150820
  2. RIBAVIRIN. [Concomitant]
     Active Substance: RIBAVIRIN
     Indication: HEPATITIS C
     Route: 048

REACTIONS (6)
  - Depressed mood [Unknown]
  - Fatigue [Recovering/Resolving]
  - Abdominal pain upper [Unknown]
  - Anxiety [Unknown]
  - Headache [Unknown]
  - Gastritis [Unknown]
